FAERS Safety Report 4652109-5 (Version None)
Quarter: 2005Q2

REPORT INFORMATION
  Report Type: 
  Country: None (occurrence: None)
  Receive Date: 20050502
  Receipt Date: 20050420
  Transmission Date: 20051028
  Serious: Yes (Other)
  Sender: FDA-Public Use
  Company Number: 2005061885

PATIENT
  Sex: Female

DRUGS (10)
  1. NORVASC [Suspect]
     Indication: HYPERTENSION
     Dosage: 5 MG (5 MG, 1 IN 1 D)
  2. ENALAPRIL MALEATE [Concomitant]
  3. METOPROLOL TARTRATE [Concomitant]
  4. LEVOTHYROXINE SODIUM [Concomitant]
  5. OCUVITE (ASCORBIC ACID, RETINOL, TOCOPHEROL) [Concomitant]
  6. CALCIUM (CALCIUM) [Concomitant]
  7. ASCORBIC ACID [Concomitant]
  8. TOCOPHEROL (TOCOPHEROL) [Concomitant]
  9. ASPIRIN [Concomitant]
  10. TYLENOL PM (DIPHENHYDRAMINE PARACETAMOL) [Concomitant]

REACTIONS (5)
  - ARTHRITIS [None]
  - BLOOD PRESSURE FLUCTUATION [None]
  - MACULAR DEGENERATION [None]
  - PHARMACEUTICAL PRODUCT COMPLAINT [None]
  - VISUAL ACUITY REDUCED [None]
